FAERS Safety Report 18144746 (Version 1)
Quarter: 2020Q3

REPORT INFORMATION
  Report Type: Spontaneous
  Country: US (occurrence: US)
  Receive Date: 20200813
  Receipt Date: 20200813
  Transmission Date: 20201103
  Serious: Yes (Other)
  Sender: FDA-Public Use
  Company Number: US-BAYER-2020-169052

PATIENT
  Age: 32 Year
  Sex: Female

DRUGS (1)
  1. MIRENA [Suspect]
     Active Substance: LEVONORGESTREL
     Indication: INTRA-UTERINE CONTRACEPTIVE DEVICE INSERTION
     Dosage: 20 ?G PER DAY CONTIUOUSLY
     Route: 015
     Dates: start: 201903, end: 201908

REACTIONS (1)
  - Genital haemorrhage [None]

NARRATIVE: CASE EVENT DATE: 2019
